FAERS Safety Report 5497300-3 (Version None)
Quarter: 2007Q4

REPORT INFORMATION
  Report Type: 
  Country: None (occurrence: None)
  Receive Date: 20071025
  Receipt Date: 20060926
  Transmission Date: 20080405
  Serious: No
  Sender: FDA-Public Use
  Company Number: A0621551A

PATIENT
  Age: 54 Year
  Sex: Male

DRUGS (4)
  1. ADVAIR DISKUS 100/50 [Suspect]
     Indication: EMPHYSEMA
     Route: 055
  2. ALBUTEROL [Suspect]
     Route: 065
  3. COMBIVENT [Suspect]
     Route: 065
  4. ATROVENT [Suspect]
     Route: 065

REACTIONS (1)
  - DRUG INEFFECTIVE [None]
